FAERS Safety Report 8241587-0 (Version None)
Quarter: 2012Q1

REPORT INFORMATION
  Report Type: 
  Country: None (occurrence: None)
  Receive Date: 20120328
  Receipt Date: 20100512
  Transmission Date: 20120608
  Serious: Yes (Hospitalization)
  Sender: FDA-Public Use
  Company Number: AU-SANOFI-AVENTIS-2010SA027528

PATIENT
  Age: 78 Year
  Sex: Male
  Weight: 86.85 kg

DRUGS (11)
  1. ATACAND HCT [Concomitant]
     Dates: start: 20040101
  2. AFLIBERCEPT [Suspect]
     Route: 042
     Dates: start: 20090811, end: 20090811
  3. AFLIBERCEPT [Suspect]
     Route: 042
     Dates: start: 20100420, end: 20100420
  4. WARFARIN SODIUM [Concomitant]
     Dates: start: 19770101
  5. NEXIUM [Concomitant]
     Dates: start: 20090811
  6. DOCETAXEL [Suspect]
     Route: 042
     Dates: start: 20090811, end: 20090811
  7. ATORVASTATIN [Concomitant]
     Dates: start: 20050101
  8. PREDNISONE TAB [Suspect]
     Route: 048
     Dates: start: 20090811, end: 20100203
  9. ZOLADEX [Concomitant]
     Indication: HORMONE THERAPY
     Dates: start: 20070101
  10. FISH OIL [Concomitant]
     Dates: start: 20080101
  11. DOCETAXEL [Suspect]
     Route: 042
     Dates: start: 20100105, end: 20100105

REACTIONS (1)
  - GASTRIC ULCER [None]
